FAERS Safety Report 13542987 (Version 1)
Quarter: 2017Q2

REPORT INFORMATION
  Report Type: Spontaneous
  Country: US (occurrence: US)
  Receive Date: 20170513
  Receipt Date: 20170513
  Transmission Date: 20170830
  Serious: Yes (Hospitalization, Other)
  Sender: FDA-Public Use
  Company Number: US-BION-006302

PATIENT
  Age: 62 Year
  Sex: Male

DRUGS (3)
  1. COCAINE/COCAINE HYDROCHLORIDE [Concomitant]
  2. ACETYLSALICYLIC ACID [Interacting]
     Active Substance: ASPIRIN
     Indication: PRODUCT USED FOR UNKNOWN INDICATION
     Dosage: }100 MG
  3. NAPROXEN SODIUM LIQUID GEL UNKNOWN [Suspect]
     Active Substance: NAPROXEN SODIUM
     Indication: PRODUCT USED FOR UNKNOWN INDICATION

REACTIONS (5)
  - Melaena [Unknown]
  - Drug administration error [Not Recovered/Not Resolved]
  - Mouth haemorrhage [Unknown]
  - Labelled drug-drug interaction medication error [Not Recovered/Not Resolved]
  - Epistaxis [Unknown]
